FAERS Safety Report 8666012 (Version 2)
Quarter: 2012Q4

REPORT INFORMATION
  Report Type: Report from Study
  Country: CN (occurrence: CN)
  Receive Date: 20120716
  Receipt Date: 20121031
  Transmission Date: 20130627
  Serious: Yes (Hospitalization)
  Sender: FDA-Public Use
  Company Number: PHHY2012CN060025

PATIENT
  Age: 28 Year
  Sex: Male
  Weight: 50 kg

DRUGS (3)
  1. MYCOPHENOLIC ACID [Suspect]
     Indication: PROPHYLAXIS AGAINST TRANSPLANT REJECTION
     Dosage: 1500 mg, daily
     Route: 048
     Dates: start: 20120104
  2. SANDIMMUN NEORAL [Suspect]
     Indication: RENAL TRANSPLANT
     Dosage: 200 mg, daily
     Route: 048
     Dates: start: 20120104, end: 20120611
  3. SANDIMMUN NEORAL [Suspect]
     Indication: PROPHYLAXIS AGAINST TRANSPLANT REJECTION

REACTIONS (6)
  - Diabetes mellitus [Recovered/Resolved with Sequelae]
  - Dry mouth [Recovered/Resolved with Sequelae]
  - Fatigue [Recovered/Resolved with Sequelae]
  - Weight decreased [Recovered/Resolved with Sequelae]
  - Lung infection [Recovered/Resolved with Sequelae]
  - Interstitial lung disease [Recovered/Resolved with Sequelae]
